FAERS Safety Report 8238111-5 (Version None)
Quarter: 2012Q1

REPORT INFORMATION
  Report Type: 
  Country: None (occurrence: None)
  Receive Date: 20120327
  Receipt Date: 20120321
  Transmission Date: 20120608
  Serious: Yes (Hospitalization)
  Sender: FDA-Public Use
  Company Number: FR-GLAXOSMITHKLINE-B0791478A

PATIENT
  Age: 36 Year
  Sex: Female

DRUGS (1)
  1. NABUMETONE [Suspect]
     Indication: NECK PAIN
     Dosage: 500MG PER DAY
     Route: 048
     Dates: start: 20110115, end: 20110115

REACTIONS (2)
  - ANGIOEDEMA [None]
  - URTICARIA [None]
